FAERS Safety Report 21967316 (Version 1)
Quarter: 2023Q1

REPORT INFORMATION
  Report Type: Spontaneous
  Country: US (occurrence: None)
  Receive Date: 20230206
  Receipt Date: 20230206
  Transmission Date: 20230417
  Serious: Yes (Death)
  Sender: FDA-Public Use
  Company Number: None

PATIENT
  Sex: Female

DRUGS (15)
  1. METHADONE [Suspect]
     Active Substance: METHADONE HYDROCHLORIDE
     Indication: Drug dependence
     Dosage: FREQUENCY : 3 TIMES A DAY;?
     Route: 048
     Dates: start: 20210506, end: 20220129
  2. METHADONE [Suspect]
     Active Substance: METHADONE HYDROCHLORIDE
     Indication: Headache
  3. NORCO [Suspect]
     Active Substance: ACETAMINOPHEN\HYDROCODONE BITARTRATE
     Indication: Drug dependence
     Dosage: OTHER FREQUENCY : EVERY 6 HOURS PRN;?
     Route: 048
     Dates: start: 20210422, end: 20220129
  4. NORCO [Suspect]
     Active Substance: ACETAMINOPHEN\HYDROCODONE BITARTRATE
     Indication: Headache
  5. SEROQUEL [Concomitant]
     Active Substance: QUETIAPINE FUMARATE
     Dates: start: 20220125, end: 20220129
  6. SEROQUEL [Concomitant]
     Active Substance: QUETIAPINE FUMARATE
     Dates: start: 20210713, end: 20220124
  7. SEROQUEL [Concomitant]
     Active Substance: QUETIAPINE FUMARATE
     Dates: start: 20210416, end: 20210617
  8. ZOLOFT [Concomitant]
     Active Substance: SERTRALINE HYDROCHLORIDE
     Dates: start: 20210430, end: 20220129
  9. LAMICTAL [Concomitant]
     Active Substance: LAMOTRIGINE
     Dates: start: 20211021, end: 20220129
  10. Amitriptyline 150 mg [Concomitant]
     Dates: start: 20210915, end: 20220129
  11. Ativan 1 mg [Concomitant]
     Dates: start: 20220107, end: 20220122
  12. Ativan 0.5 mg [Concomitant]
     Dates: start: 20211102, end: 20211117
  13. Hydralazine 50 mg [Concomitant]
     Dates: start: 20210915, end: 20220129
  14. Metoprolol ER 50 mg [Concomitant]
     Dates: start: 20210407, end: 20220129
  15. NARCAN [Concomitant]
     Active Substance: NALOXONE HYDROCHLORIDE
     Dates: start: 20210907, end: 20220129

REACTIONS (1)
  - Toxicity to various agents [None]
